FAERS Safety Report 21907471 (Version 1)
Quarter: 2023Q1

REPORT INFORMATION
  Report Type: Spontaneous
  Country: US (occurrence: None)
  Receive Date: 20230124
  Receipt Date: 20230124
  Transmission Date: 20230418
  Serious: No
  Sender: FDA-Public Use
  Company Number: None

PATIENT
  Sex: Female

DRUGS (1)
  1. STELARA [Suspect]
     Active Substance: USTEKINUMAB
     Indication: Psoriasis
     Dosage: OTHER QUANTITY : 45MG/.5ML;?OTHER FREQUENCY : EVERY 12 WEEKS ;?
     Route: 058
     Dates: start: 20220722

REACTIONS (1)
  - Drug ineffective [None]
